FAERS Safety Report 8712833 (Version 3)
Quarter: 2012Q4

REPORT INFORMATION
  Report Type: 
  Country: US (occurrence: US)
  Receive Date: 20120808
  Receipt Date: 20121010
  Transmission Date: 20130627
  Serious: Yes (Death, Other)
  Sender: FDA-Public Use
  Company Number: US-INCYTE CORPORATION-2012IN001452

PATIENT
  Age: 75 None
  Sex: Female
  Weight: 70.3 kg

DRUGS (10)
  1. JAKAFI [Suspect]
     Indication: MYELOFIBROSIS
     Dosage: 15 mg, bid
     Route: 048
     Dates: start: 20120201
  2. JAKAFI [Suspect]
     Dosage: 20 mg, bid
     Route: 048
     Dates: start: 20120424, end: 201206
  3. ACYCLOVIR [Concomitant]
     Indication: HERPES SIMPLEX
  4. CYMBALTA [Concomitant]
     Dosage: d
  5. SYNTHROID [Concomitant]
     Dosage: 125 mcg, qam
  6. TEMAZEPAM [Concomitant]
     Dosage: 30 mg, qhs
  7. URSODIOL [Concomitant]
     Dosage: As directed
  8. CHOLESTYRAMINE [Concomitant]
     Dosage: 4 gm packet mixed with water, bid
  9. OXYCODONE/APAP [Concomitant]
     Dosage: 10-325 mg, prn, q4h
  10. COREG [Concomitant]
     Dosage: 12.5 with food, bid
     Dates: end: 201206

REACTIONS (17)
  - Acute myeloid leukaemia [Fatal]
  - Mouth haemorrhage [Unknown]
  - Iron deficiency [Unknown]
  - Fatigue [Unknown]
  - Sensation of heaviness [Unknown]
  - Pain in extremity [Unknown]
  - Dyspnoea [Unknown]
  - Feeling abnormal [Unknown]
  - Faeces discoloured [Unknown]
  - Diarrhoea [Unknown]
  - Epistaxis [Unknown]
  - Pallor [Unknown]
  - Malaise [Unknown]
  - Supraventricular extrasystoles [Unknown]
  - Hyponatraemia [Unknown]
  - Platelet function test abnormal [Unknown]
  - Anaemia [Unknown]
